FAERS Safety Report 25067772 (Version 2)
Quarter: 2025Q3

REPORT INFORMATION
  Report Type: Report from Study
  Country: US (occurrence: US)
  Receive Date: 20250312
  Receipt Date: 20250803
  Transmission Date: 20251021
  Serious: Yes (Other)
  Sender: ALEXION PHARMACEUTICALS
  Company Number: US-ASTRAZENECA-202503USA002247US

PATIENT
  Age: 82 Year
  Sex: Female

DRUGS (1)
  1. STRENSIQ [Suspect]
     Active Substance: ASFOTASE ALFA
     Indication: Phosphorus metabolism disorder
     Dosage: 2 MILLIGRAM/KILOGRAM, TIW
     Route: 065

REACTIONS (9)
  - Lipoedema [Unknown]
  - Oedema peripheral [Unknown]
  - Osteoporosis [Unknown]
  - Kidney small [Unknown]
  - Asthenia [Unknown]
  - Balance disorder [Unknown]
  - Dysstasia [Unknown]
  - Blood parathyroid hormone increased [Unknown]
  - Glomerular filtration rate decreased [Unknown]

NARRATIVE: CASE EVENT DATE: 20241125
